FAERS Safety Report 11660286 (Version 2)
Quarter: 2017Q4

REPORT INFORMATION
  Report Type: Report from Study
  Country: None (occurrence: GB)
  Receive Date: 20151026
  Receipt Date: 20171115
  Transmission Date: 20180320
  Serious: Yes (Death)
  Sender: FDA-Public Use
  Company Number: GB-ABBVIE-15K-167-1487356-00

PATIENT
  Age: 54 Year
  Sex: Male
  Weight: 82.6 kg

DRUGS (1)
  1. HUMIRA [Suspect]
     Active Substance: ADALIMUMAB
     Indication: PSORIASIS
     Route: 058
     Dates: start: 20120927

REACTIONS (1)
  - Completed suicide [Fatal]

NARRATIVE: CASE EVENT DATE: 20150130
